FAERS Safety Report 25625882 (Version 1)
Quarter: 2025Q3

REPORT INFORMATION
  Report Type: Spontaneous
  Country: GB (occurrence: GB)
  Receive Date: 20250731
  Receipt Date: 20250731
  Transmission Date: 20251021
  Serious: Yes (Other)
  Sender: AUROBINDO
  Company Number: GB-MHRA-MED-202507211012256900-BCJRP

PATIENT
  Age: 70 Year
  Sex: Female
  Weight: 51 kg

DRUGS (2)
  1. AMLODIPINE [Suspect]
     Active Substance: AMLODIPINE BESYLATE
     Indication: Hypertension
     Dosage: 5 MILLIGRAM, ONCE A DAY (I NOW TAKE 5MG ONCE A DAY AND THE SIDE EFFECTS ARE ACCEPTABLE.)
     Route: 065
     Dates: start: 20250320
  2. RAMIPRIL [Concomitant]
     Active Substance: RAMIPRIL
     Indication: Hypertension
     Route: 065
     Dates: start: 20250320

REACTIONS (3)
  - Constipation [Recovering/Resolving]
  - Joint swelling [Recovering/Resolving]
  - Medication error [Unknown]

NARRATIVE: CASE EVENT DATE: 20250501
